FAERS Safety Report 21714810 (Version 1)
Quarter: 2022Q4

REPORT INFORMATION
  Report Type: Spontaneous
  Country: US (occurrence: US)
  Receive Date: 20221212
  Receipt Date: 20221212
  Transmission Date: 20230113
  Serious: No
  Sender: FDA-Public Use
  Company Number: US-JUBILANT CADISTA PHARMACEUTICALS INC.-2022JUB00079

PATIENT
  Age: 51 Year
  Sex: Male
  Weight: 74.84 kg

DRUGS (4)
  1. METHYLPREDNISOLONE [Suspect]
     Active Substance: METHYLPREDNISOLONE
     Indication: Rash
     Dosage: 24 MG (6 TABLETS), ONCE ON THE FIRST DAY
     Dates: start: 20210601, end: 20210601
  2. PEPCID [Suspect]
     Active Substance: FAMOTIDINE
     Indication: Rash
     Dosage: UNK
     Dates: start: 20210601
  3. DIPHENHYDRAMINE [Suspect]
     Active Substance: DIPHENHYDRAMINE
     Indication: Rash
     Dosage: UNK
     Dates: start: 20210601
  4. PFIZER-BIONTECH COVID-19 VACCINE [Suspect]
     Active Substance: TOZINAMERAN
     Indication: COVID-19 immunisation
     Dosage: FIRST DOSE, TOP OF UPPER LEFT ARM IN THE MUSCLE
     Route: 030
     Dates: start: 20210529, end: 20210529

REACTIONS (3)
  - Rash [Recovered/Resolved]
  - Skin weeping [Recovered/Resolved]
  - Drug ineffective [Recovered/Resolved]

NARRATIVE: CASE EVENT DATE: 20210601
